FAERS Safety Report 8576177 (Version 3)
Quarter: 2013Q2

REPORT INFORMATION
  Report Type: Spontaneous
  Country: IT (occurrence: IT)
  Receive Date: 20120523
  Receipt Date: 20130429
  Transmission Date: 20140414
  Serious: Yes (Hospitalization)
  Sender: FDA-Public Use
  Company Number: IT-BAYER-2012-050528

PATIENT
  Age: 54 Year
  Sex: Female

DRUGS (2)
  1. MAGNEVIST [Suspect]
     Indication: NUCLEAR MAGNETIC RESONANCE IMAGING
     Dosage: 20 ML, ONCE
     Route: 042
     Dates: start: 20120516, end: 20120516
  2. BEVACIZUMAB [Concomitant]
     Dosage: UNK
     Dates: end: 201206

REACTIONS (5)
  - Hyperhidrosis [Unknown]
  - Skin warm [Unknown]
  - Asthenia [Unknown]
  - Muscular weakness [Unknown]
  - Presyncope [Unknown]
